FAERS Safety Report 11971944 (Version 3)
Quarter: 2016Q3

REPORT INFORMATION
  Report Type: Spontaneous
  Country: US (occurrence: US)
  Receive Date: 20160128
  Receipt Date: 20160912
  Transmission Date: 20161109
  Serious: No
  Sender: FDA-Public Use
  Company Number: US-PFIZER INC-2016035660

PATIENT
  Age: 69 Year
  Sex: Female

DRUGS (1)
  1. IBRANCE [Suspect]
     Active Substance: PALBOCICLIB
     Indication: NEOPLASM MALIGNANT
     Dosage: 125 MG, CYCLIC (ONE CAPSULE ONCE DAILY FOR 21 DAYS AND OFF FOR 7 DAYS)
     Route: 048

REACTIONS (3)
  - Disease progression [Unknown]
  - Diarrhoea [Unknown]
  - Neoplasm malignant [Unknown]
